FAERS Safety Report 5609742-3 (Version None)
Quarter: 2008Q1

REPORT INFORMATION
  Report Type: 
  Country: None (occurrence: None)
  Receive Date: 20080131
  Receipt Date: 20070316
  Transmission Date: 20080703
  Serious: No
  Sender: FDA-Public Use
  Company Number: US-BAYER-200710835BCC

PATIENT
  Age: 53 Year
  Sex: Female
  Weight: 49 kg

DRUGS (5)
  1. ALEVE COLD AND SINUS [Suspect]
     Indication: NASOPHARYNGITIS
     Dosage: TOTAL DAILY DOSE: 220 MG  UNIT DOSE: 220 MG
     Route: 048
     Dates: start: 20070217, end: 20070225
  2. STORE BRAND MULTIVITAMIN [Concomitant]
  3. OMEGA 3 [Concomitant]
  4. ASCORBIC ACID [Concomitant]
  5. CALCIUM GLUCONATE [Concomitant]

REACTIONS (1)
  - DEPRESSION [None]
